FAERS Safety Report 20975121 (Version 2)
Quarter: 2022Q3

REPORT INFORMATION
  Report Type: Other
  Country: US (occurrence: US)
  Receive Date: 20220617
  Receipt Date: 20220825
  Transmission Date: 20221026
  Serious: Yes (Hospitalization, Other)
  Sender: FDA-Public Use
  Company Number: US-Covis Pharma GmbH-2022COV01832

PATIENT
  Age: 0 Year
  Sex: Male
  Weight: 2.044 kg

DRUGS (1)
  1. MAKENA [Suspect]
     Active Substance: HYDROXYPROGESTERONE CAPROATE
     Indication: Foetal exposure during pregnancy
     Route: 064
     Dates: start: 20220215, end: 20220525

REACTIONS (4)
  - Use of accessory respiratory muscles [Unknown]
  - Premature baby [Unknown]
  - Newborn head moulding [Unknown]
  - Contusion [Unknown]

NARRATIVE: CASE EVENT DATE: 20220528
